FAERS Safety Report 15803042 (Version 2)
Quarter: 2019Q1

REPORT INFORMATION
  Report Type: Spontaneous
  Country: DE (occurrence: DE)
  Receive Date: 20190109
  Receipt Date: 20190312
  Transmission Date: 20190417
  Serious: Yes (Hospitalization, Other)
  Sender: FDA-Public Use
  Company Number: DE-PFIZER INC-2015345199

PATIENT
  Age: 73 Year
  Sex: Male

DRUGS (5)
  1. RAPAMUNE [Suspect]
     Active Substance: SIROLIMUS
     Indication: PROPHYLAXIS AGAINST TRANSPLANT REJECTION
     Dosage: 1.5 MG EVERY 2 TO 3 DAYS
     Dates: start: 201503
  2. RAPAMUNE [Suspect]
     Active Substance: SIROLIMUS
     Dosage: 1 MG DAILY AND 1.5 MG EVERY OTHER DAY
  3. RAPAMUNE [Suspect]
     Active Substance: SIROLIMUS
     Dosage: 1 MG FOR 3 DAYS AND 0.5 MG FOR 1 DAY
  4. RAPAMUNE [Suspect]
     Active Substance: SIROLIMUS
     Dosage: EVERY THIRD DAY 1.5 MG, OTHERWISE 1 MG DAILY
  5. RAPAMUNE [Suspect]
     Active Substance: SIROLIMUS
     Dosage: 1 MG, DAILY

REACTIONS (10)
  - Vision blurred [Unknown]
  - Tremor [Unknown]
  - Confusional state [Unknown]
  - Blindness [Unknown]
  - Peripheral swelling [Unknown]
  - Acne [Recovered/Resolved]
  - Paraesthesia [Unknown]
  - Blood pressure increased [Unknown]
  - Headache [Unknown]
  - Drug level increased [Unknown]

NARRATIVE: CASE EVENT DATE: 2015
